FAERS Safety Report 24719415 (Version 2)
Quarter: 2024Q4

REPORT INFORMATION
  Report Type: Spontaneous
  Country: FR (occurrence: FR)
  Receive Date: 20241211
  Receipt Date: 20241220
  Transmission Date: 20250114
  Serious: Yes (Life-Threatening)
  Sender: ROCHE
  Company Number: FR-ROCHE-10000138637

PATIENT
  Age: 58 Year
  Sex: Female
  Weight: 48 kg

DRUGS (1)
  1. GLOFITAMAB [Suspect]
     Active Substance: GLOFITAMAB
     Indication: Diffuse large B-cell lymphoma refractory
     Dosage: ON 16/08, 19/08 , 23/08/2024: 3 INJECTIONS OF GLOFITAMAB
     Route: 042
     Dates: start: 20240816

REACTIONS (1)
  - Lung cancer metastatic [Unknown]
